FAERS Safety Report 9222812 (Version 1)
Quarter: 2013Q2

REPORT INFORMATION
  Report Type: Spontaneous
  Country: IE (occurrence: IE)
  Receive Date: 20130410
  Receipt Date: 20130410
  Transmission Date: 20140414
  Serious: Yes (Other)
  Sender: FDA-Public Use
  Company Number: IE-ROCHE-1206251

PATIENT
  Age: 50 Year
  Sex: Female

DRUGS (7)
  1. ACTILYSE [Suspect]
     Indication: THROMBOLYSIS
     Route: 042
     Dates: start: 20100131
  2. ESTRADERM TTS [Concomitant]
  3. RAMIPRIL [Concomitant]
  4. PRAVASTATIN [Concomitant]
  5. ALPRAZOLAM [Concomitant]
  6. PROPRANOLOL [Concomitant]
  7. ASPIRIN [Concomitant]

REACTIONS (1)
  - Respiratory arrest [Recovered/Resolved]
